FAERS Safety Report 13033185 (Version 1)
Quarter: 2016Q4

REPORT INFORMATION
  Report Type: Report from Study
  Country: US (occurrence: US)
  Receive Date: 20161216
  Receipt Date: 20161216
  Transmission Date: 20170207
  Serious: Yes (Hospitalization)
  Sender: FDA-Public Use
  Company Number: US-ROCHE-1866033

PATIENT
  Age: 61 Year
  Sex: Female
  Weight: 102.15 kg

DRUGS (2)
  1. XARELTO [Suspect]
     Active Substance: RIVAROXABAN
     Indication: PRODUCT USED FOR UNKNOWN INDICATION
     Route: 065
  2. ACTEMRA [Suspect]
     Active Substance: TOCILIZUMAB
     Indication: RHEUMATOID ARTHRITIS
     Route: 042
     Dates: start: 2014, end: 201511

REACTIONS (15)
  - Post procedural haemorrhage [Unknown]
  - Cellulitis [Unknown]
  - Arthralgia [Not Recovered/Not Resolved]
  - Purulent discharge [Unknown]
  - Deep vein thrombosis [Unknown]
  - Fall [Unknown]
  - Staphylococcal osteomyelitis [Unknown]
  - Joint swelling [Not Recovered/Not Resolved]
  - Tooth extraction [Recovered/Resolved]
  - Vaginal haemorrhage [Recovered/Resolved]
  - Fracture displacement [Unknown]
  - Postoperative wound infection [Unknown]
  - Scar [Not Recovered/Not Resolved]
  - Malaise [Unknown]
  - Impaired healing [Not Recovered/Not Resolved]

NARRATIVE: CASE EVENT DATE: 2015
